FAERS Safety Report 9491531 (Version 3)
Quarter: 2013Q3

REPORT INFORMATION
  Report Type: Spontaneous
  Country: FR (occurrence: FR)
  Receive Date: 20130830
  Receipt Date: 20130924
  Transmission Date: 20140515
  Serious: Yes (Other)
  Sender: FDA-Public Use
  Company Number: FR-ASTRAZENECA-2013SE65370

PATIENT
  Age: 25858 Day
  Sex: Female
  Weight: 55.5 kg

DRUGS (14)
  1. INEXIUM [Suspect]
     Route: 048
  2. METHOTREXATE MYLAN [Interacting]
     Indication: LYMPHOMA
     Dosage: 100 MG/ML, 5100 MG ONCE, FOR 3 HOURS
     Route: 041
     Dates: start: 20130619, end: 20130619
  3. METHOTREXATE MYLAN [Interacting]
     Indication: LYMPHOMA
     Dosage: 100 MG/ML, 4800 MG ONCE, FOR 3 HOURS
     Route: 041
     Dates: start: 20130703, end: 20130703
  4. METHOTREXATE MYLAN [Interacting]
     Indication: LYMPHOMA
     Dosage: 100 MG/ML, 4700 MG ONCE, FOR 3 HOURS
     Route: 041
     Dates: start: 20130723, end: 20130723
  5. AUGMENTIN [Interacting]
     Route: 041
     Dates: start: 20130618, end: 20130708
  6. SOLUMEDROL [Concomitant]
  7. ZOPHREN [Concomitant]
  8. ACUPAN [Concomitant]
  9. INSULIN [Concomitant]
  10. HEPARIN [Concomitant]
  11. MABTHERA [Concomitant]
     Indication: LYMPHOMA
     Dates: start: 20130525, end: 20130610
  12. MABTHERA [Concomitant]
     Indication: LYMPHOMA
     Dates: start: 20130619, end: 20130722
  13. CYTARABINE [Concomitant]
     Indication: LYMPHOMA
     Route: 042
     Dates: start: 20130704
  14. CALCIUM FOLINATE [Concomitant]

REACTIONS (3)
  - Drug interaction [Unknown]
  - Chemotherapeutic drug level above therapeutic [Recovered/Resolved]
  - Weight decreased [Unknown]
